FAERS Safety Report 6758179-2 (Version None)
Quarter: 2010Q2

REPORT INFORMATION
  Report Type: 
  Country: None (occurrence: None)
  Receive Date: 20100607
  Receipt Date: 20100526
  Transmission Date: 20101027
  Serious: Yes (Hospitalization)
  Sender: FDA-Public Use
  Company Number: DE-TEVA-236187ISR

PATIENT
  Age: 54 Year
  Sex: Female
  Weight: 113 kg

DRUGS (1)
  1. LORATADINE [Suspect]
     Route: 048
     Dates: start: 20070721, end: 20070731

REACTIONS (3)
  - PRURITUS [None]
  - THROAT TIGHTNESS [None]
  - URTICARIA [None]
